FAERS Safety Report 9373373 (Version 1)
Quarter: 2013Q2

REPORT INFORMATION
  Report Type: Spontaneous
  Country: US (occurrence: US)
  Receive Date: 20130627
  Receipt Date: 20130627
  Transmission Date: 20140414
  Serious: Yes (Hospitalization, Other)
  Sender: FDA-Public Use
  Company Number: US-PURDUE-USA-2013-0103840

PATIENT
  Sex: Female

DRUGS (5)
  1. OXYCONTIN (NDA 22-272) [Suspect]
     Indication: ARTHRALGIA
     Dosage: 20 MG, SEE TEXT
     Route: 048
     Dates: start: 2008
  2. OXYCONTIN (NDA 22-272) [Suspect]
     Indication: PAIN IN EXTREMITY
  3. VENTOLIN                           /00139501/ [Concomitant]
     Indication: DYSPNOEA
     Dosage: 1 PUFF, PRN
     Route: 055
  4. AMBIEN [Concomitant]
     Indication: INSOMNIA
     Dosage: 20 MG, HS
     Route: 048
     Dates: start: 2008
  5. ESTROGEN [Concomitant]
     Indication: HORMONE THERAPY
     Dosage: UNK
     Route: 048

REACTIONS (7)
  - Drug dependence [Not Recovered/Not Resolved]
  - Blood pressure increased [Unknown]
  - Hypoaesthesia [Recovered/Resolved with Sequelae]
  - General physical health deterioration [Unknown]
  - Fall [Unknown]
  - Dyspnoea [Unknown]
  - Urticaria [Unknown]
